APPROVED DRUG PRODUCT: SIMPESSE
Active Ingredient: ETHINYL ESTRADIOL; LEVONORGESTREL
Strength: 0.03MG,0.01MG;0.15MG,N/A
Dosage Form/Route: TABLET;ORAL
Application: A206851 | Product #001 | TE Code: AB
Applicant: AUROBINDO PHARMA LTD
Approved: Apr 7, 2017 | RLD: No | RS: No | Type: RX